FAERS Safety Report 9478711 (Version 2)
Quarter: 2014Q1

REPORT INFORMATION
  Report Type: Spontaneous
  Country: US (occurrence: US)
  Receive Date: 20130827
  Receipt Date: 20140117
  Transmission Date: 20141002
  Serious: Yes (Disabling)
  Sender: FDA-Public Use
  Company Number: US-009507513-1308USA010458

PATIENT
  Age: 70 Year
  Sex: Male

DRUGS (1)
  1. COZAAR [Suspect]
     Dosage: UNK
     Route: 048
     Dates: end: 201212

REACTIONS (4)
  - Polyarthritis [Recovering/Resolving]
  - Lupus-like syndrome [Recovering/Resolving]
  - Antinuclear antibody increased [Recovering/Resolving]
  - Mental status changes [Recovering/Resolving]
